FAERS Safety Report 25187945 (Version 1)
Quarter: 2025Q2

REPORT INFORMATION
  Report Type: Spontaneous
  Country: CN (occurrence: CN)
  Receive Date: 20250411
  Receipt Date: 20250411
  Transmission Date: 20250717
  Serious: Yes (Hospitalization)
  Sender: ACCORD
  Company Number: None

PATIENT
  Age: 62 Year
  Sex: Female

DRUGS (3)
  1. TRASTUZUMAB [Suspect]
     Active Substance: TRASTUZUMAB
     Indication: Breast cancer
     Dosage: 450 MILLIGRAM, QD, STRENGTH: 150 MILLIGRAM, IV DRIP
     Route: 042
     Dates: start: 20250224, end: 20250224
  2. PACLITAXEL [Suspect]
     Active Substance: PACLITAXEL
     Indication: Product used for unknown indication
     Dosage: 300 MILLIGRAM, QD, IV DRIP
     Route: 042
     Dates: start: 20250224, end: 20250224
  3. PERTUZUMAB [Suspect]
     Active Substance: PERTUZUMAB
     Indication: Product used for unknown indication
     Dosage: 420 MILLIGRAM, QD, IV DRIP
     Route: 042
     Dates: start: 20250224, end: 20250224

REACTIONS (1)
  - Liver injury [Recovering/Resolving]

NARRATIVE: CASE EVENT DATE: 20250318
